FAERS Safety Report 16203884 (Version 2)
Quarter: 2019Q2

REPORT INFORMATION
  Report Type: Spontaneous
  Country: US (occurrence: US)
  Receive Date: 20190416
  Receipt Date: 20190503
  Transmission Date: 20190711
  Serious: No
  Sender: FDA-Public Use
  Company Number: US-BAYER-2019-075787

PATIENT
  Age: 37 Year
  Sex: Female
  Weight: 111.11 kg

DRUGS (8)
  1. TYLENOL EXTRA STRENGTH [Concomitant]
     Active Substance: ACETAMINOPHEN
     Indication: MIGRAINE
  2. TYLENOL EXTRA STRENGTH [Concomitant]
     Active Substance: ACETAMINOPHEN
     Indication: HEADACHE
  3. XANAX [Concomitant]
     Active Substance: ALPRAZOLAM
     Dosage: UNK
     Dates: start: 20170515
  4. ADDERALL [Concomitant]
     Active Substance: AMPHETAMINE ASPARTATE\AMPHETAMINE SULFATE\DEXTROAMPHETAMINE SACCHARATE\DEXTROAMPHETAMINE SULFATE
     Dosage: UNK
  5. MIRENA [Suspect]
     Active Substance: LEVONORGESTREL
     Indication: CONTRACEPTION
     Dosage: 20 MCG/24HR, CONT
     Route: 015
     Dates: start: 20160803, end: 20190328
  6. MIRENA [Suspect]
     Active Substance: LEVONORGESTREL
     Indication: CONTRACEPTION
  7. IMITREX DF [Concomitant]
     Active Substance: SUMATRIPTAN SUCCINATE
     Dosage: UNK
  8. PRENATAL [ASCORBIC ACID;CALCIUM GLUCONATE;CUPRIC CARBONATE, BASIC; [Concomitant]

REACTIONS (5)
  - Abdominal pain lower [None]
  - Vaginal haemorrhage [None]
  - Urinary incontinence [None]
  - Amenorrhoea [None]
  - Dysuria [None]

NARRATIVE: CASE EVENT DATE: 20190328
